FAERS Safety Report 18579586 (Version 1)
Quarter: 2020Q4

REPORT INFORMATION
  Report Type: Spontaneous
  Country: MY (occurrence: MY)
  Receive Date: 20201204
  Receipt Date: 20201204
  Transmission Date: 20210114
  Serious: Yes (Other)
  Sender: FDA-Public Use
  Company Number: MY-AMGEN-MYSSP2020183751

PATIENT
  Age: 36 Year
  Sex: Female

DRUGS (7)
  1. PASURTA [Suspect]
     Active Substance: ERENUMAB
     Indication: MIGRAINE
     Dosage: 70 MILLIGRAM
     Route: 058
     Dates: start: 20200701
  2. CRESTOR [Concomitant]
     Active Substance: ROSUVASTATIN CALCIUM
     Indication: PRODUCT USED FOR UNKNOWN INDICATION
     Dosage: 10 MG, QD
     Route: 065
  3. PASURTA [Suspect]
     Active Substance: ERENUMAB
     Dosage: 70 MILLIGRAM
     Route: 058
     Dates: start: 20200805
  4. PASURTA [Suspect]
     Active Substance: ERENUMAB
     Dosage: 70 MILLIGRAM
     Route: 058
     Dates: start: 20201002
  5. ATACAND [Concomitant]
     Active Substance: CANDESARTAN CILEXETIL
     Indication: PRODUCT USED FOR UNKNOWN INDICATION
     Dosage: 16 MG, QD
     Route: 065
  6. PASURTA [Suspect]
     Active Substance: ERENUMAB
     Dosage: 70 MILLIGRAM
     Route: 058
     Dates: start: 20200902
  7. PASURTA [Suspect]
     Active Substance: ERENUMAB
     Dosage: 70 MILLIGRAM
     Route: 058
     Dates: start: 20201102

REACTIONS (2)
  - Migraine [Unknown]
  - Headache [Unknown]
